FAERS Safety Report 15646440 (Version 7)
Quarter: 2019Q2

REPORT INFORMATION
  Report Type: Report from Study
  Country: US (occurrence: US)
  Receive Date: 20181122
  Receipt Date: 20190413
  Transmission Date: 20190711
  Serious: Yes (Hospitalization)
  Sender: FDA-Public Use
  Company Number: US-AMGEN-USACT2018166693

PATIENT
  Age: 63 Year
  Sex: Male
  Weight: 74.6 kg

DRUGS (17)
  1. CARFILZOMIB [Suspect]
     Active Substance: CARFILZOMIB
     Dosage: 56 MG/M2,  ON DAYS 1, 2, 8, 9, 15 AND 16
     Route: 042
     Dates: start: 20181005, end: 20181005
  2. CARFILZOMIB [Suspect]
     Active Substance: CARFILZOMIB
     Dosage: 83 MG/M2, ON DAYS 1, 2, 8, 9, 15 AND 16
     Route: 042
     Dates: start: 20181109, end: 20181109
  3. DEXAMETHASONE. [Suspect]
     Active Substance: DEXAMETHASONE
     Dosage: 12 MG, CYCLE 1-18 ON DAYS 1, 2, 8, 9, 15, 16, 22 AND 23
     Route: 048
     Dates: start: 20180510, end: 20180824
  4. CARFILZOMIB [Suspect]
     Active Substance: CARFILZOMIB
     Indication: PLASMA CELL MYELOMA
     Dosage: 56 MG/M2,  ON DAYS 1, 2, 8, 9, 15 AND 16
     Route: 042
     Dates: start: 20180315, end: 20180330
  5. CARFILZOMIB [Suspect]
     Active Substance: CARFILZOMIB
     Dosage: 104 MG/M2,  ON DAYS 1, 2, 8, 9, 15 AND 16
     Route: 042
     Dates: start: 20180802, end: 20180817
  6. CARFILZOMIB [Suspect]
     Active Substance: CARFILZOMIB
     Dosage: 104 MG/M2,  ON DAYS 1, 2, 8, 9, 15 AND 16
     Route: 042
     Dates: start: 20181011, end: 20181108
  7. ATIVAN [Concomitant]
     Active Substance: LORAZEPAM
     Indication: RESTLESSNESS
     Dosage: 1 MG, AS REQUIRED
     Route: 048
     Dates: start: 20180420
  8. VENETOCLAX. [Suspect]
     Active Substance: VENETOCLAX
     Dosage: 400 MG, 1 IN 1 D
     Route: 048
     Dates: start: 20181117
  9. DEXAMETHASONE. [Suspect]
     Active Substance: DEXAMETHASONE
     Indication: PLASMA CELL MYELOMA
     Dosage: 20 MG, CYCLE 1-18 ON DAYS 1, 2, 8, 9, 15, 16, 22 AND 23
     Route: 048
     Dates: start: 20180315, end: 20180504
  10. DEXAMETHASONE. [Suspect]
     Active Substance: DEXAMETHASONE
     Dosage: 8 MG, CYCLE 1-18 ON DAYS 1, 2, 8, 9, 15, 16, 22 AND 23
     Route: 048
     Dates: start: 20180830, end: 20180921
  11. DEXAMETHASONE. [Suspect]
     Active Substance: DEXAMETHASONE
     Dosage: 4 MG, CYCLE 1-18 ON DAYS 1, 2, 8, 9, 15, 16, 22 AND 23
     Route: 048
     Dates: start: 20180927, end: 20181109
  12. CARFILZOMIB [Suspect]
     Active Substance: CARFILZOMIB
     Dosage: 102 MG/M2,  ON DAYS 1, 2, 8, 9, 15 AND 16
     Route: 042
     Dates: start: 20180412, end: 20180525
  13. VENETOCLAX. [Suspect]
     Active Substance: VENETOCLAX
     Indication: PLASMA CELL MYELOMA
     Dosage: 800 MILLIGRAM 1 IN 1 D
     Route: 048
     Dates: start: 20180315, end: 20181109
  14. AMLODIPINE [Concomitant]
     Active Substance: AMLODIPINE BESYLATE
     Indication: HYPERTENSION
     Dosage: 5 MG, 1 IN 1 D (10 MG AS REQUIRED)
     Route: 048
     Dates: start: 20180420
  15. CARFILZOMIB [Suspect]
     Active Substance: CARFILZOMIB
     Dosage: 102 MG/M2,  ON DAYS 1, 2, 8, 9, 15 AND 16
     Route: 042
     Dates: start: 20180830, end: 20180914
  16. CARFILZOMIB [Suspect]
     Active Substance: CARFILZOMIB
     Dosage: 104 MG/M2,  ON DAYS 1, 2, 8, 9, 15 AND 16
     Route: 042
     Dates: start: 20180927, end: 20181004
  17. ALLOPURINOL. [Concomitant]
     Active Substance: ALLOPURINOL
     Indication: PROPHYLAXIS
     Dosage: 300 MG, 1 IN 1 D
     Route: 048
     Dates: start: 20180315, end: 20180412

REACTIONS (3)
  - Dyspnoea [Recovered/Resolved]
  - Cardiac failure acute [Recovered/Resolved]
  - Hypoxia [Recovered/Resolved]

NARRATIVE: CASE EVENT DATE: 20181111
